FAERS Safety Report 10505593 (Version 2)
Quarter: 2014Q4

REPORT INFORMATION
  Report Type: Spontaneous
  Country: US (occurrence: US)
  Receive Date: 20141008
  Receipt Date: 20141016
  Transmission Date: 20150528
  Serious: No
  Sender: FDA-Public Use
  Company Number: US-TEVA-514459USA

PATIENT
  Age: 25 Year
  Sex: Female
  Weight: 55.84 kg

DRUGS (3)
  1. TAKE ACTION [Suspect]
     Active Substance: LEVONORGESTREL
     Indication: POST COITAL CONTRACEPTION
     Dosage: 1.5 MILLIGRAM DAILY;
     Route: 048
     Dates: start: 20140929, end: 20140929
  2. ELAVIL [Concomitant]
     Active Substance: AMITRIPTYLINE HYDROCHLORIDE
     Indication: DEPRESSION
  3. ELAVIL [Concomitant]
     Active Substance: AMITRIPTYLINE HYDROCHLORIDE
     Indication: SLEEP DISORDER

REACTIONS (1)
  - Menstruation irregular [Recovered/Resolved]

NARRATIVE: CASE EVENT DATE: 20141005
